FAERS Safety Report 6045957-0 (Version None)
Quarter: 2009Q1

REPORT INFORMATION
  Report Type: 
  Country: None (occurrence: None)
  Receive Date: 20090116
  Receipt Date: 20081219
  Transmission Date: 20090719
  Serious: Yes (Life-Threatening, Hospitalization)
  Sender: FDA-Public Use
  Company Number: 20080377 /

PATIENT
  Age: 19 Year
  Sex: Female

DRUGS (5)
  1. VENOFER [Suspect]
     Indication: ANAEMIA
     Dosage: 300MG ONCE INTRAVENOUS
     Route: 042
     Dates: start: 20080904, end: 20080904
  2. VENOFER [Suspect]
     Indication: HAEMOGLOBIN
     Dosage: 300MG ONCE INTRAVENOUS
     Route: 042
     Dates: start: 20080904, end: 20080904
  3. VENOFER [Suspect]
     Indication: HAEMOGLOBIN DECREASED
     Dosage: 300MG ONCE INTRAVENOUS
     Route: 042
     Dates: start: 20080904, end: 20080904
  4. AUGMENTIN (AMOXICILLIN, CLAVULANIC ACID) [Concomitant]
  5. GENTAMICIN [Concomitant]

REACTIONS (3)
  - HEPATIC FAILURE [None]
  - HEPATITIS [None]
  - OVERDOSE [None]
